FAERS Safety Report 14111424 (Version 1)
Quarter: 2017Q4

REPORT INFORMATION
  Report Type: Spontaneous
  Country: GB (occurrence: GB)
  Receive Date: 20171020
  Receipt Date: 20171020
  Transmission Date: 20180321
  Serious: Yes (Other)
  Sender: FDA-Public Use
  Company Number: GB-GILEAD-2017-0299716

PATIENT
  Age: 56 Year
  Sex: Male

DRUGS (4)
  1. ATAZANAVIR. [Concomitant]
     Active Substance: ATAZANAVIR SULFATE
  2. EVOTAZ [Concomitant]
     Active Substance: ATAZANAVIR SULFATE\COBICISTAT
  3. DESCOVY [Suspect]
     Active Substance: EMTRICITABINE\TENOFOVIR ALAFENAMIDE FUMARATE
     Indication: PRODUCT USED FOR UNKNOWN INDICATION
     Dosage: 1 DF, UNK
     Route: 048
     Dates: start: 20170522, end: 20170823
  4. RITONAVIR. [Concomitant]
     Active Substance: RITONAVIR

REACTIONS (4)
  - Pain [Recovered/Resolved]
  - Pallor [Recovered/Resolved]
  - Ischaemic skin ulcer [Recovered/Resolved with Sequelae]
  - Peripheral coldness [Recovered/Resolved]

NARRATIVE: CASE EVENT DATE: 20170712
